FAERS Safety Report 7023304-5 (Version None)
Quarter: 2010Q3

REPORT INFORMATION
  Report Type: 
  Country: None (occurrence: None)
  Receive Date: 20100930
  Receipt Date: 20100918
  Transmission Date: 20110219
  Serious: Yes (Hospitalization)
  Sender: FDA-Public Use
  Company Number: US-PFIZER INC-2010118230

PATIENT
  Sex: Female
  Weight: 54.24 kg

DRUGS (11)
  1. PREGABALIN [Suspect]
     Indication: FIBROMYALGIA
     Dosage: 75 MG, 1X/DAY
     Dates: start: 20100902
  2. PREGABALIN [Suspect]
     Dosage: 75 MG, 2X/DAY
     Dates: start: 20100905
  3. PREGABALIN [Suspect]
     Dosage: 150 MG, 2X/DAY
     Dates: start: 20100908
  4. ALLEGRA [Concomitant]
     Indication: SEASONAL ALLERGY
     Dosage: 180 MG, 1X/DAY
     Route: 048
     Dates: start: 20020101
  5. ALBUTEROL [Concomitant]
     Indication: ASTHMA
     Dosage: 2 PUFFS
     Route: 055
     Dates: start: 20000101
  6. MONTELUKAST [Concomitant]
     Indication: ASTHMA
     Dosage: 10 MG, 1X/DAY
     Route: 048
     Dates: start: 20020101
  7. MONTELUKAST [Concomitant]
     Indication: HYPERSENSITIVITY
  8. FLONASE [Concomitant]
     Indication: ASTHMA
     Dosage: 100 UG, AS NEEDED
     Route: 045
     Dates: start: 20020101, end: 20100907
  9. MINOCYCLINE [Concomitant]
     Indication: ACNE
     Dosage: 90 MG, 1X/DAY
     Route: 048
     Dates: start: 20100301
  10. BENZALIN [Concomitant]
     Indication: ACNE
     Dosage: UNK
     Route: 061
     Dates: start: 20100513
  11. TRETINOIN [Concomitant]
     Indication: ACNE
     Dosage: UNK
     Route: 061
     Dates: start: 20100513

REACTIONS (1)
  - MIGRAINE [None]
